FAERS Safety Report 16569879 (Version 3)
Quarter: 2019Q4

REPORT INFORMATION
  Report Type: Spontaneous
  Country: AU (occurrence: AU)
  Receive Date: 20190715
  Receipt Date: 20191016
  Transmission Date: 20200122
  Serious: Yes (Other)
  Sender: FDA-Public Use
  Company Number: AU-BEH-2019104075

PATIENT
  Age: 61 Year

DRUGS (2)
  1. PRIVIGEN [Suspect]
     Active Substance: HUMAN IMMUNOGLOBULIN G
     Indication: MYOPATHY
     Dosage: 30 GRAM, TOTAL
     Route: 065
     Dates: start: 20190517
  2. PRIVIGEN [Suspect]
     Active Substance: HUMAN IMMUNOGLOBULIN G
     Indication: NECROTISING MYOSITIS

REACTIONS (6)
  - White blood cell count increased [Unknown]
  - Meningitis aseptic [Unknown]
  - No adverse event [Unknown]
  - Product use in unapproved indication [Unknown]
  - Chills [Unknown]
  - Musculoskeletal stiffness [Unknown]

NARRATIVE: CASE EVENT DATE: 20190517
